FAERS Safety Report 6848621-0 (Version None)
Quarter: 2010Q3

REPORT INFORMATION
  Report Type: 
  Country: None (occurrence: None)
  Receive Date: 20100716
  Receipt Date: 20100708
  Transmission Date: 20110219
  Serious: Yes (Hospitalization)
  Sender: FDA-Public Use
  Company Number: GXKR2010DK07506

PATIENT

DRUGS (1)
  1. SUMATRIPTAN (NGX) [Suspect]
     Indication: MIGRAINE
     Dosage: 50-100 MG TABLETS
     Route: 048
     Dates: start: 20030301, end: 20100504

REACTIONS (2)
  - MUSCULOSKELETAL DISORDER [None]
  - SENSORY DISTURBANCE [None]
